FAERS Safety Report 4789823-7 (Version None)
Quarter: 2005Q4

REPORT INFORMATION
  Report Type: 
  Country: None (occurrence: None)
  Receive Date: 20051006
  Receipt Date: 20051003
  Transmission Date: 20060501
  Serious: Yes (Hospitalization)
  Sender: FDA-Public Use
  Company Number: FR-GLAXOSMITHKLINE-B0396251A

PATIENT
  Age: 56 Year
  Sex: Female

DRUGS (11)
  1. AUGMENTIN [Suspect]
     Dosage: 1G THREE TIMES PER DAY
     Route: 048
     Dates: start: 20050930
  2. ROCEPHIN [Concomitant]
     Dates: start: 20050927, end: 20050930
  3. OFLOCET [Concomitant]
     Dates: start: 20050927, end: 20050930
  4. PERFALGAN [Concomitant]
     Dates: start: 20050927, end: 20050930
  5. DAFALGAN [Concomitant]
     Route: 048
     Dates: start: 20050930, end: 20051003
  6. ROVAMYCINE [Concomitant]
     Route: 048
     Dates: start: 20050930
  7. CORTANCYL [Concomitant]
     Route: 048
  8. PLAQUENIL [Concomitant]
  9. TRIATEC [Concomitant]
  10. ELISOR [Concomitant]
     Dates: end: 20051003
  11. PHOSPHALUGEL [Concomitant]

REACTIONS (4)
  - AUTOIMMUNE HEPATITIS [None]
  - BLOOD ALKALINE PHOSPHATASE INCREASED [None]
  - GAMMA-GLUTAMYLTRANSFERASE INCREASED [None]
  - TRANSAMINASES INCREASED [None]
